FAERS Safety Report 8886164 (Version 1)
Quarter: 2012Q4

REPORT INFORMATION
  Report Type: 
  Country: SE (occurrence: SE)
  Receive Date: 20121105
  Receipt Date: 20121105
  Transmission Date: 20130627
  Serious: Yes (Other)
  Sender: FDA-Public Use
  Company Number: SE-ASTRAZENECA-2012SE82453

PATIENT
  Age: 48 Year
  Sex: Male
  Weight: 80 kg

DRUGS (5)
  1. PULMICORT TURBUHALER [Suspect]
     Indication: SECRETION DISCHARGE
     Route: 055
  2. RHINOCORT [Suspect]
     Indication: SECRETION DISCHARGE
     Route: 045
  3. PREDNISOLON [Concomitant]
  4. CETIRIZINE [Concomitant]
     Indication: URTICARIA
  5. OMEPRAZOLE [Concomitant]
     Indication: ULCER

REACTIONS (7)
  - Testis cancer [Unknown]
  - Condition aggravated [Unknown]
  - Abscess jaw [Recovering/Resolving]
  - Gastric disorder [Unknown]
  - Urticaria [Unknown]
  - Bacterial infection [Unknown]
  - Off label use [Unknown]
